FAERS Safety Report 5823787-X (Version None)
Quarter: 2008Q3

REPORT INFORMATION
  Report Type: 
  Country: None (occurrence: None)
  Receive Date: 20080725
  Receipt Date: 20080724
  Transmission Date: 20090109
  Serious: Yes (Other)
  Sender: FDA-Public Use
  Company Number: JP-MERCK-0807USA01024

PATIENT
  Age: 54 Year
  Sex: Male

DRUGS (8)
  1. PRIMAXIN [Suspect]
     Route: 042
     Dates: start: 20060601, end: 20060601
  2. CLINDAMYCIN [Suspect]
     Route: 065
     Dates: start: 20060601, end: 20060601
  3. CIPROFLOXACIN [Suspect]
     Route: 065
     Dates: start: 20060601, end: 20060601
  4. BIAPENEM [Suspect]
     Route: 065
     Dates: start: 20060601, end: 20060601
  5. BIAPENEM [Suspect]
     Route: 065
     Dates: start: 20060601, end: 20060701
  6. POLYMYXIN B SULFATE [Suspect]
     Route: 065
     Dates: start: 20060601, end: 20060701
  7. FLUCONAZOLE [Concomitant]
     Indication: EYE INFECTION FUNGAL
     Route: 042
     Dates: start: 20060701, end: 20060807
  8. FUNGUARD [Concomitant]
     Indication: EYE INFECTION FUNGAL
     Route: 042
     Dates: start: 20060808

REACTIONS (5)
  - EYE INFECTION FUNGAL [None]
  - GLAUCOMA [None]
  - OSTEOMYELITIS [None]
  - PERITONITIS [None]
  - SYSTEMIC CANDIDA [None]
